FAERS Safety Report 8573988-5 (Version None)
Quarter: 2012Q3

REPORT INFORMATION
  Report Type: 
  Country: None (occurrence: None)
  Receive Date: 20120806
  Receipt Date: 20120801
  Transmission Date: 20120928
  Serious: Yes (Other)
  Sender: FDA-Public Use
  Company Number: JP-PFIZER INC-2012138017

PATIENT
  Age: 65 Year
  Sex: Female

DRUGS (6)
  1. NORVASC [Concomitant]
     Dosage: UNK
     Dates: start: 20111014
  2. CRESTOR [Concomitant]
     Dosage: UNK
     Dates: start: 20100604
  3. MIGLITOL [Suspect]
     Indication: TYPE 2 DIABETES MELLITUS
     Dosage: 150 MG, 3X/DAY
     Route: 048
     Dates: start: 20120229, end: 20120403
  4. NATEGLINIDE [Concomitant]
     Dosage: UNK
     Dates: start: 20091212
  5. JANUVIA [Concomitant]
     Dosage: UNK
     Dates: start: 20110113
  6. CANDESARTAN CILEXETIL [Concomitant]
     Dosage: UNK
     Dates: start: 20080905

REACTIONS (3)
  - ABDOMINAL DISTENSION [None]
  - HEPATIC FUNCTION ABNORMAL [None]
  - DRUG-INDUCED LIVER INJURY [None]
